FAERS Safety Report 6542575-2 (Version None)
Quarter: 2010Q1

REPORT INFORMATION
  Report Type: 
  Country: None (occurrence: None)
  Receive Date: 20100119
  Receipt Date: 20100114
  Transmission Date: 20100710
  Serious: Yes (Hospitalization)
  Sender: FDA-Public Use
  Company Number: TR-ELI_LILLY_AND_COMPANY-TR201001002517

PATIENT
  Age: 56 Year
  Sex: Female

DRUGS (8)
  1. HUMALOG MIX 75/25 [Suspect]
     Indication: DIABETES MELLITUS
     Dosage: 36 IU, EACH MORNING
     Route: 058
     Dates: start: 20090101
  2. HUMALOG MIX 75/25 [Suspect]
     Dosage: 16 IU, EACH EVENING
     Route: 058
     Dates: start: 20090101
  3. CRESTOR [Concomitant]
     Dosage: 20 MG, DAILY (1/D)
     Route: 048
  4. GLUKOFEN [Concomitant]
     Dosage: 850 MG, 3/D
     Route: 048
  5. HYZAAR [Concomitant]
     Dosage: 125 MG, DAILY (1/D)
     Route: 048
  6. NEBIVOLOL [Concomitant]
     Route: 048
  7. FLUDEX-SR [Concomitant]
     Dosage: 1.5 MG, DAILY (1/D)
     Route: 048
  8. NORVASC [Concomitant]
     Dosage: 10 MG, DAILY (1/D)
     Route: 048

REACTIONS (1)
  - BLOOD GLUCOSE FLUCTUATION [None]
